FAERS Safety Report 24576327 (Version 2)
Quarter: 2025Q2

REPORT INFORMATION
  Report Type: Spontaneous
  Country: US (occurrence: US)
  Receive Date: 20241104
  Receipt Date: 20250429
  Transmission Date: 20250717
  Serious: No
  Sender: TRAVERE THERAPEUTICS
  Company Number: US-TRAVERE-2024TVT01086

PATIENT
  Age: 58 Year
  Sex: Male

DRUGS (4)
  1. FILSPARI [Suspect]
     Active Substance: SPARSENTAN
     Indication: Haematuria
     Route: 048
     Dates: start: 20241016
  2. FILSPARI [Suspect]
     Active Substance: SPARSENTAN
     Route: 048
  3. METOPROLOL [Concomitant]
     Active Substance: METOPROLOL
  4. HYDROCHLOROTHIAZIDE [Concomitant]
     Active Substance: HYDROCHLOROTHIAZIDE

REACTIONS (4)
  - Dizziness [Recovered/Resolved]
  - Product use in unapproved indication [Unknown]
  - Oedema peripheral [Unknown]
  - Arthritis [Unknown]

NARRATIVE: CASE EVENT DATE: 20241017
